FAERS Safety Report 7245876-8 (Version None)
Quarter: 2011Q1

REPORT INFORMATION
  Report Type: 
  Country: None (occurrence: None)
  Receive Date: 20110126
  Receipt Date: 20110113
  Transmission Date: 20110831
  Serious: Yes (Hospitalization)
  Sender: FDA-Public Use
  Company Number: GR-ELI_LILLY_AND_COMPANY-GR201101002975

PATIENT
  Age: 55 Year
  Sex: Female
  Weight: 40 kg

DRUGS (5)
  1. LYRICA [Concomitant]
     Indication: PAIN
     Dosage: 300 MG, DAILY (1/D)
     Route: 048
     Dates: start: 20110107
  2. ACTIQ [Concomitant]
     Indication: PAIN
     Dosage: 200 MG, DAILY (1/D)
     Route: 048
     Dates: start: 20110107
  3. CYMBALTA [Suspect]
     Indication: PAIN
     Dosage: 30 MG, DAILY (1/D)
     Route: 048
     Dates: start: 20110111, end: 20110111
  4. FENTANYL [Concomitant]
     Indication: PAIN
     Dosage: UNK UNK, DAILY (1/D)
     Route: 062
     Dates: start: 20110107
  5. PRILOSEC [Concomitant]
     Indication: PROPHYLAXIS
     Dosage: UNK UNK, DAILY (1/D)
     Route: 048
     Dates: start: 20110107

REACTIONS (2)
  - PHARYNGEAL OEDEMA [None]
  - LOCALISED OEDEMA [None]
